FAERS Safety Report 4339864-9 (Version None)
Quarter: 2004Q2

REPORT INFORMATION
  Report Type: 
  Country: None (occurrence: None)
  Receive Date: 20040412
  Receipt Date: 20030818
  Transmission Date: 20050107
  Serious: Yes (Other)
  Sender: FDA-Public Use
  Company Number: DE-JNJFOC-20030803985

PATIENT
  Age: 11 Year
  Sex: Female

DRUGS (2)
  1. RISPERDAL [Suspect]
     Indication: AGGRESSION
     Dosage: 3 MG, 1 IN 1 DAY
     Dates: start: 20000101
  2. RISPERDAL [Suspect]
     Indication: AUTISM
     Dosage: 3 MG, 1 IN 1 DAY
     Dates: start: 20000101

REACTIONS (1)
  - THROMBOCYTOPENIA [None]
